FAERS Safety Report 22131420 (Version 1)
Quarter: 2023Q1

REPORT INFORMATION
  Report Type: Spontaneous
  Country: US (occurrence: None)
  Receive Date: 20230322
  Receipt Date: 20230322
  Transmission Date: 20230417
  Serious: Yes (Hospitalization)
  Sender: FDA-Public Use
  Company Number: None

PATIENT
  Age: 58 Year
  Sex: Male

DRUGS (1)
  1. CAPECITABINE [Suspect]
     Active Substance: CAPECITABINE
     Dosage: OTHER QUANTITY : 1500MG IN AM/2000M;?FREQUENCY : TWICE A DAY;?
     Route: 048

REACTIONS (4)
  - COVID-19 [None]
  - Infection [None]
  - Hypotension [None]
  - Hypertension [None]

NARRATIVE: CASE EVENT DATE: 20230215
